FAERS Safety Report 10923972 (Version 1)
Quarter: 2015Q1

REPORT INFORMATION
  Report Type: Spontaneous
  Country: US (occurrence: None)
  Receive Date: 20150316
  Receipt Date: 20150316
  Transmission Date: 20150721
  Serious: Yes (Death)
  Sender: FDA-Public Use
  Company Number: None

PATIENT
  Weight: 49 kg

DRUGS (1)
  1. COUMADIN [Suspect]
     Active Substance: WARFARIN SODIUM
     Dosage: 2.5MG, TU, TH, SUN AND 5MG OTHER DAYS

REACTIONS (2)
  - Haemorrhage intracranial [None]
  - Brain herniation [None]

NARRATIVE: CASE EVENT DATE: 20150125
